FAERS Safety Report 8517124-X (Version None)
Quarter: 2012Q3

REPORT INFORMATION
  Report Type: 
  Country: None (occurrence: None)
  Receive Date: 20120718
  Receipt Date: 20120711
  Transmission Date: 20120928
  Serious: Yes (Hospitalization)
  Sender: FDA-Public Use
  Company Number: DE-UCBSA-014103

PATIENT
  Age: 43 Year
  Sex: Female
  Weight: 140 kg

DRUGS (16)
  1. TOREM 10 [Concomitant]
     Dosage: 0.5-0-0
  2. CIMZIA [Suspect]
     Indication: RHEUMATOID ARTHRITIS
     Route: 058
     Dates: start: 20100329
  3. CIMZIA [Suspect]
     Route: 058
     Dates: start: 20100426, end: 20100604
  4. CIMZIA [Suspect]
     Route: 058
     Dates: start: 20100412
  5. METHOTREXATE SODIUM [Concomitant]
     Dosage: SUFFICIENT QUANTITY
     Dates: start: 20090918, end: 20100310
  6. METHOTREXATE SODIUM [Concomitant]
     Indication: RHEUMATOID ARTHRITIS
     Dosage: SUFFICIENT QUANTITY
     Route: 058
     Dates: start: 20100326, end: 20100604
  7. BAYMYCARD 20 [Concomitant]
     Dosage: 1-0-0
  8. PREDNISOLONE [Concomitant]
     Indication: RHEUMATOID ARTHRITIS
     Route: 048
     Dates: start: 20030101
  9. PANTOPRAZOLE [Concomitant]
     Route: 048
  10. VIDISIC EYE-DROPS [Concomitant]
  11. NOVORAPID INSULIN PUMP [Concomitant]
     Indication: DIABETES MELLITUS
     Dosage: I
     Dates: start: 20100301
  12. FOLIC ACID [Concomitant]
     Indication: GASTROINTESTINAL DISORDER
     Dosage: SUFFICIENT QUANTITY
     Dates: start: 20100326, end: 20100604
  13. IDEOS KT [Concomitant]
     Dosage: 1-0-0
  14. RAMIPRIL 2.5 [Concomitant]
     Dosage: 1-0-0
  15. NEBIVOLOLE 5 [Concomitant]
     Dosage: 1-0-0
  16. SALAGEN [Concomitant]
     Dosage: 4 TABLETS DAILY

REACTIONS (1)
  - ENDOMETRIAL CANCER [None]
